FAERS Safety Report 15350231 (Version 1)
Quarter: 2018Q3

REPORT INFORMATION
  Report Type: Spontaneous
  Country: GB (occurrence: GB)
  Receive Date: 20180905
  Receipt Date: 20180905
  Transmission Date: 20181010
  Serious: Yes (Disabling)
  Sender: FDA-Public Use
  Company Number: GB-TEVA-2018-GB-951468

PATIENT
  Age: 48 Year
  Sex: Male
  Weight: 88.9 kg

DRUGS (1)
  1. MIRTAZAPINE. [Suspect]
     Active Substance: MIRTAZAPINE
     Indication: DEPRESSION
     Route: 048
     Dates: start: 20170102

REACTIONS (6)
  - Feeling abnormal [Not Recovered/Not Resolved]
  - Arthralgia [Not Recovered/Not Resolved]
  - Anxiety [Not Recovered/Not Resolved]
  - Nausea [Not Recovered/Not Resolved]
  - Nervousness [Not Recovered/Not Resolved]
  - Skin burning sensation [Not Recovered/Not Resolved]

NARRATIVE: CASE EVENT DATE: 20170302
